FAERS Safety Report 21985365 (Version 1)
Quarter: 2023Q1

REPORT INFORMATION
  Report Type: Spontaneous
  Country: US (occurrence: None)
  Receive Date: 20230211
  Receipt Date: 20230211
  Transmission Date: 20230418
  Serious: Yes (Other)
  Sender: FDA-Public Use
  Company Number: None

PATIENT
  Age: 65 Year
  Sex: Female
  Weight: 75.75 kg

DRUGS (3)
  1. LEVAQUIN [Suspect]
     Active Substance: LEVOFLOXACIN
  2. COSMETICS [Suspect]
     Active Substance: COSMETICS
  3. Levaqiin [Concomitant]

REACTIONS (4)
  - Occipital neuralgia [None]
  - Economic problem [None]
  - Drug ineffective [None]
  - Panic reaction [None]

NARRATIVE: CASE EVENT DATE: 20160529
